FAERS Safety Report 7874162-8 (Version None)
Quarter: 2011Q4

REPORT INFORMATION
  Report Type: 
  Country: None (occurrence: None)
  Receive Date: 20111030
  Receipt Date: 20110516
  Transmission Date: 20120403
  Serious: No
  Sender: FDA-Public Use
  Company Number: US-AMGEN-USASP2011025212

PATIENT
  Sex: Male

DRUGS (1)
  1. ENBREL [Suspect]
     Indication: ANKYLOSING SPONDYLITIS
     Dosage: 50 MG, QWK
     Route: 058
     Dates: start: 20110427

REACTIONS (5)
  - GAIT DISTURBANCE [None]
  - MOBILITY DECREASED [None]
  - JOINT STIFFNESS [None]
  - THERAPEUTIC RESPONSE DECREASED [None]
  - MUSCULOSKELETAL PAIN [None]
